FAERS Safety Report 8413499-0 (Version None)
Quarter: 2012Q2

REPORT INFORMATION
  Report Type: 
  Country: None (occurrence: None)
  Receive Date: 20120605
  Receipt Date: 20120529
  Transmission Date: 20120825
  Serious: No
  Sender: FDA-Public Use
  Company Number: US-PFIZER INC-2011092405

PATIENT
  Sex: Female

DRUGS (2)
  1. PANTOPRAZOLE [Suspect]
     Dosage: UNK
  2. PROTONIX [Suspect]
     Dosage: UNK

REACTIONS (7)
  - HEART RATE INCREASED [None]
  - FLATULENCE [None]
  - PAIN [None]
  - MIGRAINE [None]
  - ARTHRITIS [None]
  - EATING DISORDER [None]
  - CHEST PAIN [None]
